FAERS Safety Report 24142409 (Version 2)
Quarter: 2024Q4

REPORT INFORMATION
  Report Type: Report from Study
  Country: CA (occurrence: CA)
  Receive Date: 20240726
  Receipt Date: 20241015
  Transmission Date: 20250114
  Serious: Yes (Death, Life-Threatening, Hospitalization, Other)
  Sender: HLS THERAPEUTICS
  Company Number: CA-HLS-202401738

PATIENT
  Age: 68 Year
  Sex: Female

DRUGS (2)
  1. CLOZARIL [Suspect]
     Active Substance: CLOZAPINE
     Indication: Psychotic behaviour
     Dosage: 25 MG EVERY BEDTIME
     Route: 048
     Dates: start: 20221118, end: 20240626
  2. OZEMPIC [Concomitant]
     Active Substance: SEMAGLUTIDE
     Indication: Product used for unknown indication
     Route: 065

REACTIONS (7)
  - Abdominal pain [Unknown]
  - Altered state of consciousness [Unknown]
  - Hypothermia [Unknown]
  - Hypovolaemic shock [Fatal]
  - Off label use [Unknown]
  - Pancreatitis [Not Recovered/Not Resolved]
  - Septic shock [Fatal]

NARRATIVE: CASE EVENT DATE: 20240625
